FAERS Safety Report 21306710 (Version 1)
Quarter: 2022Q3

REPORT INFORMATION
  Report Type: Spontaneous
  Country: FR (occurrence: FR)
  Receive Date: 20220908
  Receipt Date: 20220908
  Transmission Date: 20221026
  Serious: Yes (Other)
  Sender: FDA-Public Use
  Company Number: FR-SUN PHARMACEUTICAL INDUSTRIES LTD-2022RR-353383

PATIENT
  Age: 85 Year
  Sex: Male
  Weight: 73 kg

DRUGS (5)
  1. PREGABALIN [Interacting]
     Active Substance: PREGABALIN
     Indication: Anxiety
     Dosage: 100 MILLIGRAM, DAILY, 50 MG X2/DAY
     Route: 048
     Dates: start: 20220814
  2. NEFOPAM [Suspect]
     Active Substance: NEFOPAM
     Indication: Procedural pain
     Dosage: 45 MILLIGRAM; 80 MG / 24H
     Route: 040
     Dates: start: 20220815, end: 20220816
  3. PROPOFOL [Interacting]
     Active Substance: PROPOFOL
     Indication: General anaesthesia
     Dosage: 1728 MILLIGRAM, UNK
     Route: 040
     Dates: start: 20220815, end: 20220815
  4. MIANSERIN HYDROCHLORIDE [Concomitant]
     Active Substance: MIANSERIN HYDROCHLORIDE
     Indication: Depression
     Dosage: 10 MILLIGRAM, DAILY
     Route: 048
  5. REMIFENTANIL HYDROCHLORIDE [Concomitant]
     Active Substance: REMIFENTANIL HYDROCHLORIDE
     Indication: General anaesthesia
     Dosage: 1739 MICROGRAM, UNK
     Route: 040
     Dates: start: 20220815, end: 20220815

REACTIONS (1)
  - Hallucinations, mixed [Recovered/Resolved]

NARRATIVE: CASE EVENT DATE: 20220816
